FAERS Safety Report 10213456 (Version 3)
Quarter: 2014Q3

REPORT INFORMATION
  Report Type: Spontaneous
  Country: US (occurrence: US)
  Receive Date: 20140603
  Receipt Date: 20140724
  Transmission Date: 20150326
  Serious: Yes (Other)
  Sender: FDA-Public Use
  Company Number: US-SA-2014SA062021

PATIENT
  Age: 4 Year
  Sex: Female

DRUGS (1)
  1. CEREZYME [Suspect]
     Active Substance: IMIGLUCERASE
     Indication: GAUCHER^S DISEASE
     Dosage: DOSE:1600 UNIT(S)
     Route: 042
     Dates: start: 20120807

REACTIONS (14)
  - Infusion site extravasation [Unknown]
  - Urine flow decreased [Unknown]
  - Influenza like illness [Unknown]
  - Vomiting [Unknown]
  - Asthma [Unknown]
  - Diarrhoea [Unknown]
  - Poor venous access [Unknown]
  - Nausea [Unknown]
  - Pyrexia [Not Recovered/Not Resolved]
  - Localised oedema [Recovered/Resolved]
  - Productive cough [Unknown]
  - Dyspnoea [Recovered/Resolved]
  - Pain [Not Recovered/Not Resolved]
  - Erythema [Unknown]

NARRATIVE: CASE EVENT DATE: 201405
